FAERS Safety Report 9882387 (Version 1)
Quarter: 2014Q1

REPORT INFORMATION
  Report Type: Spontaneous
  Country: JP (occurrence: JP)
  Receive Date: 20140207
  Receipt Date: 20140207
  Transmission Date: 20141002
  Serious: Yes (Other)
  Sender: FDA-Public Use
  Company Number: JP-GLAXOSMITHKLINE-B0966880A

PATIENT
  Sex: Female

DRUGS (2)
  1. RELENZA [Suspect]
     Indication: PYREXIA
     Dosage: 5MG FOUR TIMES PER DAY
     Route: 055
     Dates: start: 20140130
  2. UNKNOWN DRUG [Concomitant]
     Route: 048

REACTIONS (4)
  - Hypothermia [Unknown]
  - Feeling abnormal [Unknown]
  - Inappropriate schedule of drug administration [Unknown]
  - Product quality issue [Unknown]
